FAERS Safety Report 15500226 (Version 1)
Quarter: 2018Q4

REPORT INFORMATION
  Report Type: Spontaneous
  Country: US (occurrence: US)
  Receive Date: 20181015
  Receipt Date: 20181015
  Transmission Date: 20190205
  Serious: No
  Sender: FDA-Public Use
  Company Number: US-DEPOMED, INC.-US-2017DEP002126

PATIENT

DRUGS (1)
  1. NUCYNTA ER [Suspect]
     Active Substance: TAPENTADOL HYDROCHLORIDE
     Indication: PAIN
     Dosage: 250 MG, QD (100MG (2 TABLETS) IN THE MORING AND 150MG (3 TABLETS) IN THE EVENING)
     Dates: start: 20171026

REACTIONS (1)
  - Breakthrough pain [Not Recovered/Not Resolved]
